FAERS Safety Report 7868192-X (Version None)
Quarter: 2011Q4

REPORT INFORMATION
  Report Type: 
  Country: None (occurrence: None)
  Receive Date: 20111028
  Receipt Date: 20111019
  Transmission Date: 20120403
  Serious: Yes (Other)
  Sender: FDA-Public Use
  Company Number: PHHY2011GB92951

PATIENT
  Age: 35 Year

DRUGS (4)
  1. HALOPERIDOL [Suspect]
     Dosage: UNK UKN, UNK
  2. PROTON PUMP INHIBITORS [Suspect]
     Dosage: UNK UKN, UNK
  3. MORPHINE [Suspect]
     Dosage: UNK UKN, UNK
  4. PROPOFOL [Suspect]
     Dosage: UNK UKN, UNK
     Route: 042

REACTIONS (7)
  - HYPERKALAEMIA [None]
  - RHABDOMYOLYSIS [None]
  - ENTEROCOCCAL INFECTION [None]
  - HYPOPHOSPHATAEMIA [None]
  - STAPHYLOCOCCAL SEPSIS [None]
  - ACIDOSIS [None]
  - RENAL FAILURE ACUTE [None]
